FAERS Safety Report 12328770 (Version 1)
Quarter: 2016Q2

REPORT INFORMATION
  Report Type: Spontaneous
  Country: US (occurrence: US)
  Receive Date: 20160503
  Receipt Date: 20160503
  Transmission Date: 20160815
  Serious: No
  Sender: FDA-Public Use
  Company Number: US-BEH-2015050652

PATIENT
  Sex: Female
  Weight: 111.1 kg

DRUGS (24)
  1. ATENOLOL. [Concomitant]
     Active Substance: ATENOLOL
  2. LORATADINE. [Concomitant]
     Active Substance: LORATADINE
  3. LYRICA [Concomitant]
     Active Substance: PREGABALIN
  4. CENTRUM SILVER [Concomitant]
     Active Substance: MINERALS\VITAMINS
  5. ACYCLOVIR. [Concomitant]
     Active Substance: ACYCLOVIR
  6. VICODIN ES [Concomitant]
     Active Substance: ACETAMINOPHEN\HYDROCODONE BITARTRATE
  7. RESTORIL [Concomitant]
     Active Substance: TEMAZEPAM
  8. RANITIDINE HCL [Concomitant]
     Active Substance: RANITIDINE HYDROCHLORIDE
  9. KLONOPIN [Concomitant]
     Active Substance: CLONAZEPAM
  10. COLACE [Concomitant]
     Active Substance: DOCUSATE SODIUM
  11. METFORMIN HCL [Concomitant]
     Active Substance: METFORMIN HYDROCHLORIDE
  12. FISH OIL [Concomitant]
     Active Substance: FISH OIL
  13. ATIVAN [Concomitant]
     Active Substance: LORAZEPAM
  14. NAPROXEN. [Concomitant]
     Active Substance: NAPROXEN
  15. AMOXICILLIN. [Concomitant]
     Active Substance: AMOXICILLIN
  16. ACIDOPHILUS [Concomitant]
     Active Substance: LACTOBACILLUS ACIDOPHILUS
  17. MAGNESIUM OXIDE. [Concomitant]
     Active Substance: MAGNESIUM OXIDE
  18. LEVOXYL [Concomitant]
     Active Substance: LEVOTHYROXINE SODIUM
  19. ASPIRIN. [Concomitant]
     Active Substance: ASPIRIN
  20. HIZENTRA [Suspect]
     Active Substance: HUMAN IMMUNOGLOBULIN G
     Indication: IMMUNODEFICIENCY COMMON VARIABLE
     Route: 058
  21. MIRALAX [Concomitant]
     Active Substance: POLYETHYLENE GLYCOL 3350
  22. LAMICTAL [Concomitant]
     Active Substance: LAMOTRIGINE
  23. LIPITOR [Concomitant]
     Active Substance: ATORVASTATIN CALCIUM
  24. REQUIP [Concomitant]
     Active Substance: ROPINIROLE HYDROCHLORIDE

REACTIONS (1)
  - Administration site swelling [Unknown]
